FAERS Safety Report 9677100 (Version 1)
Quarter: 2013Q4

REPORT INFORMATION
  Report Type: Spontaneous
  Country: US (occurrence: US)
  Receive Date: 20131108
  Receipt Date: 20131108
  Transmission Date: 20140711
  Serious: Yes (Other)
  Sender: FDA-Public Use
  Company Number: US-ASTRAZENECA-2013SE81145

PATIENT
  Age: 50 Year
  Sex: Male
  Weight: 90.7 kg

DRUGS (7)
  1. CRESTOR [Suspect]
     Indication: BLOOD CHOLESTEROL INCREASED
     Route: 048
     Dates: start: 2005, end: 2010
  2. CRESTOR [Suspect]
     Indication: BLOOD CHOLESTEROL INCREASED
     Route: 048
     Dates: start: 2010, end: 201201
  3. CRESTOR [Suspect]
     Indication: BLOOD CHOLESTEROL INCREASED
     Route: 048
     Dates: start: 201201, end: 201206
  4. CRESTOR [Suspect]
     Indication: BLOOD CHOLESTEROL INCREASED
     Route: 048
     Dates: start: 201206, end: 201310
  5. SINGULAR [Concomitant]
     Indication: ASTHMA
     Route: 048
  6. FLOVENT [Concomitant]
     Indication: ASTHMA
     Route: 055
  7. ALBUTEROL [Concomitant]
     Indication: ASTHMA
     Dosage: UNKNOWN PRN
     Route: 055

REACTIONS (7)
  - Intervertebral disc protrusion [Unknown]
  - Red blood cell sedimentation rate increased [Unknown]
  - Peripheral nerve lesion [Unknown]
  - Blood creatine phosphokinase increased [Unknown]
  - Gait disturbance [Unknown]
  - Muscle spasms [Unknown]
  - Pain in extremity [Unknown]
